FAERS Safety Report 16009842 (Version 2)
Quarter: 2020Q1

REPORT INFORMATION
  Report Type: Spontaneous
  Country: US (occurrence: US)
  Receive Date: 20190227
  Receipt Date: 20200227
  Transmission Date: 20200409
  Serious: No
  Sender: FDA-Public Use
  Company Number: US-AUROBINDO-AUR-APU-2018-043304

PATIENT
  Sex: Female

DRUGS (1)
  1. VALSARTAN TABLETS USP 80MG [Suspect]
     Active Substance: VALSARTAN
     Indication: BLOOD PRESSURE MEASUREMENT
     Dosage: UNK
     Route: 065
     Dates: start: 20180806

REACTIONS (3)
  - Dry mouth [Unknown]
  - Product substitution issue [Unknown]
  - Oral discomfort [Unknown]
